FAERS Safety Report 20535714 (Version 1)
Quarter: 2022Q1

REPORT INFORMATION
  Report Type: Spontaneous
  Country: FR (occurrence: FR)
  Receive Date: 20220302
  Receipt Date: 20220302
  Transmission Date: 20220423
  Serious: Yes (Death, Hospitalization, Other)
  Sender: FDA-Public Use
  Company Number: FR-GRUNENTHAL-2021-271852

PATIENT

DRUGS (5)
  1. TRAMADOL HYDROCHLORIDE [Suspect]
     Active Substance: TRAMADOL HYDROCHLORIDE
     Indication: Product used for unknown indication
     Dosage: 1.2 GRAM, 1/DAY
     Route: 065
  2. TRAMADOL HYDROCHLORIDE [Suspect]
     Active Substance: TRAMADOL HYDROCHLORIDE
     Dosage: 600 MILLIGRAM, 1/DAY
     Route: 065
  3. BUPRENORPHINE [Suspect]
     Active Substance: BUPRENORPHINE
     Indication: Product used for unknown indication
     Dosage: UNK
     Route: 065
  4. METHADONE [Suspect]
     Active Substance: METHADONE HYDROCHLORIDE
     Indication: Product used for unknown indication
     Dosage: UNK
     Route: 065
  5. ACETAMINOPHEN [Suspect]
     Active Substance: ACETAMINOPHEN
     Indication: Product used for unknown indication
     Dosage: UNK
     Route: 065

REACTIONS (16)
  - Drug abuse [Unknown]
  - Dependence [Unknown]
  - Intentional product misuse [Unknown]
  - Death [Fatal]
  - Withdrawal syndrome [Unknown]
  - Depression [Unknown]
  - Suicide attempt [Unknown]
  - Seizure [Unknown]
  - Hallucination [Unknown]
  - Memory impairment [Unknown]
  - Headache [Unknown]
  - Emotional distress [Unknown]
  - Drug level above therapeutic [Fatal]
  - Adverse event [Unknown]
  - Drug diversion [Unknown]
  - Overdose [Unknown]
